FAERS Safety Report 20707154 (Version 5)
Quarter: 2022Q3

REPORT INFORMATION
  Report Type: Report from Study
  Country: CO (occurrence: CO)
  Receive Date: 20220413
  Receipt Date: 20220818
  Transmission Date: 20221027
  Serious: Yes (Death, Hospitalization, Other)
  Sender: FDA-Public Use
  Company Number: CO-TAKEDA-2022TUS024872

PATIENT
  Age: 14 Year
  Sex: Male
  Weight: 22 kg

DRUGS (2)
  1. HUMAN IMMUNOGLOBULIN G\HYALURONIDASE RECOMBINANT HUMAN [Suspect]
     Active Substance: HUMAN IMMUNOGLOBULIN G\HYALURONIDASE RECOMBINANT HUMAN
     Indication: Primary immunodeficiency syndrome
     Dosage: 7.5 GRAM, 2/MONTH
     Route: 058
     Dates: start: 20220328
  2. HUMAN IMMUNOGLOBULIN G\HYALURONIDASE RECOMBINANT HUMAN [Suspect]
     Active Substance: HUMAN IMMUNOGLOBULIN G\HYALURONIDASE RECOMBINANT HUMAN
     Dosage: 16 GRAM, MONTHLY
     Route: 058
     Dates: start: 20220328

REACTIONS (5)
  - Respiratory tract infection [Fatal]
  - Respiratory distress [Fatal]
  - Asthenia [Unknown]
  - Adverse event [Unknown]
  - Weight increased [Unknown]

NARRATIVE: CASE EVENT DATE: 20220526
